FAERS Safety Report 4532715-9 (Version None)
Quarter: 2004Q4

REPORT INFORMATION
  Report Type: 
  Country: None (occurrence: None)
  Receive Date: 20041221
  Receipt Date: 20041208
  Transmission Date: 20050328
  Serious: Yes (Hospitalization)
  Sender: FDA-Public Use
  Company Number: DE-JNJFOC-20041103945

PATIENT
  Sex: Male
  Weight: 90 kg

DRUGS (6)
  1. REMICADE [Suspect]
     Indication: ANKYLOSING SPONDYLITIS
     Route: 042
  2. VIOXX [Concomitant]
     Dosage: 25MG - 50MG/DAY
  3. PREDNISOLONE [Concomitant]
  4. CAPTOPRIL [Concomitant]
  5. BISOPROLOL FUMARATE [Concomitant]
  6. DICLOFENAC [Concomitant]

REACTIONS (1)
  - PERITONEAL TUBERCULOSIS [None]
